FAERS Safety Report 9867803 (Version 1)
Quarter: 2014Q1

REPORT INFORMATION
  Report Type: Report from Study
  Country: AT (occurrence: AT)
  Receive Date: 20140204
  Receipt Date: 20140204
  Transmission Date: 20141002
  Serious: Yes (Death)
  Sender: FDA-Public Use
  Company Number: AT-ROCHE-1337633

PATIENT
  Age: 33 Year
  Sex: Female
  Weight: 55 kg

DRUGS (14)
  1. RITUXIMAB [Suspect]
     Indication: NON-HODGKIN^S LYMPHOMA
     Dosage: 50ML PER HOUR ACCORDING TO STANDARD PROTOCOL
     Route: 042
     Dates: start: 19990722
  2. CYCLOPHOSPHAMIDE [Suspect]
     Indication: PRODUCT USED FOR UNKNOWN INDICATION
     Route: 065
  3. DOXORUBICIN [Suspect]
     Indication: PRODUCT USED FOR UNKNOWN INDICATION
     Route: 065
  4. VINCRISTINE [Suspect]
     Indication: PRODUCT USED FOR UNKNOWN INDICATION
     Route: 065
  5. PREDNISOLON [Suspect]
     Indication: PRODUCT USED FOR UNKNOWN INDICATION
     Route: 065
  6. MEXALEN [Concomitant]
     Route: 048
     Dates: start: 19990722
  7. MEXALEN [Concomitant]
     Route: 065
     Dates: start: 19990727
  8. MEXALEN [Concomitant]
     Route: 065
     Dates: start: 19990913
  9. MEXALEN [Concomitant]
     Route: 065
     Dates: start: 19991029
  10. DIBONDRIN [Concomitant]
     Dosage: 1 AMPULE
     Route: 042
     Dates: start: 19990722
  11. DIBONDRIN [Concomitant]
     Dosage: 1 AMPULE
     Route: 065
     Dates: start: 19990727
  12. DIBONDRIN [Concomitant]
     Dosage: 1 AMPULE
     Route: 065
     Dates: start: 19990913
  13. DIBONDRIN [Concomitant]
     Dosage: 1 AMPULE
     Route: 065
     Dates: start: 19991029
  14. PREDNISOLON [Concomitant]
     Route: 065
     Dates: start: 19991029

REACTIONS (3)
  - Pulmonary oedema [Fatal]
  - Cardiomegaly [Fatal]
  - Cardiomyopathy [Fatal]
